FAERS Safety Report 11775276 (Version 2)
Quarter: 2016Q1

REPORT INFORMATION
  Report Type: Spontaneous
  Country: CA (occurrence: CA)
  Receive Date: 20151124
  Receipt Date: 20160125
  Transmission Date: 20160525
  Serious: Yes (Hospitalization)
  Sender: FDA-Public Use
  Company Number: CA-ASTRAZENECA-2015SF18314

PATIENT
  Age: 81 Year
  Sex: Male

DRUGS (11)
  1. TUDORZA GENUAIR [Suspect]
     Active Substance: ACLIDINIUM BROMIDE
     Dosage: TOOK TUDORZA IN THE EVENING
     Route: 055
  2. VENTOLIN [Concomitant]
     Active Substance: ALBUTEROL SULFATE
  3. METHOTREXATE [Concomitant]
     Active Substance: METHOTREXATE
  4. VALSARTAN. [Concomitant]
     Active Substance: VALSARTAN
  5. ADVAIR HFA [Concomitant]
     Active Substance: FLUTICASONE PROPIONATE\SALMETEROL XINAFOATE
  6. BISOPROLOL [Concomitant]
     Active Substance: BISOPROLOL
  7. NORVASC [Concomitant]
     Active Substance: AMLODIPINE BESYLATE
  8. DILTIAZEM [Concomitant]
     Active Substance: DILTIAZEM
  9. CELEBREX [Concomitant]
     Active Substance: CELECOXIB
  10. TUDORZA GENUAIR [Suspect]
     Active Substance: ACLIDINIUM BROMIDE
     Route: 055
     Dates: end: 201508
  11. AAS [Concomitant]
     Active Substance: ASPIRIN

REACTIONS (2)
  - Chest pain [Recovered/Resolved]
  - Choking [Unknown]
